FAERS Safety Report 6004687-1 (Version None)
Quarter: 2008Q4

REPORT INFORMATION
  Report Type: 
  Country: None (occurrence: None)
  Receive Date: 20081216
  Receipt Date: 20081207
  Transmission Date: 20090506
  Serious: Yes (Other)
  Sender: FDA-Public Use
  Company Number: FR-PFIZER INC-2008151923

PATIENT

DRUGS (4)
  1. CELECOXIB [Suspect]
     Indication: PAIN
     Dosage: 200 MG, 1X/DAY
  2. CELECOXIB [Suspect]
     Indication: INFLAMMATION
  3. CELECOXIB [Suspect]
     Indication: OSTEOARTHRITIS
  4. PARACETAMOL [Concomitant]

REACTIONS (4)
  - ANGINA PECTORIS [None]
  - ARRHYTHMIA [None]
  - ASTHENIA [None]
  - DIZZINESS [None]
